FAERS Safety Report 24723107 (Version 4)
Quarter: 2025Q2

REPORT INFORMATION
  Report Type: Spontaneous
  Country: PL (occurrence: PL)
  Receive Date: 20241211
  Receipt Date: 20250620
  Transmission Date: 20250717
  Serious: Yes (Hospitalization, Disabling, Other)
  Sender: MYLAN
  Company Number: None

PATIENT
  Age: 83 Year
  Sex: Female
  Weight: 91 kg

DRUGS (207)
  1. ALPRAZOLAM [Suspect]
     Active Substance: ALPRAZOLAM
     Indication: Product used for unknown indication
  2. ATORVASTATIN [Suspect]
     Active Substance: ATORVASTATIN
     Indication: Product used for unknown indication
  3. LANSOPRAZOLE [Suspect]
     Active Substance: LANSOPRAZOLE
     Indication: Atrial fibrillation
     Dosage: 30 MILLIGRAM, QD (MORNING)
  4. LANSOPRAZOLE [Suspect]
     Active Substance: LANSOPRAZOLE
  5. LANSOPRAZOLE [Suspect]
     Active Substance: LANSOPRAZOLE
     Dosage: 10 MILLIGRAM, QD
  6. LANSOPRAZOLE [Suspect]
     Active Substance: LANSOPRAZOLE
     Dosage: 10 MILLIGRAM, QD
  7. LANSOPRAZOLE [Suspect]
     Active Substance: LANSOPRAZOLE
     Dosage: 30 MILLIGRAM, QD
  8. LANSOPRAZOLE [Suspect]
     Active Substance: LANSOPRAZOLE
     Dosage: 10 MILLIGRAM, QD
     Dates: end: 20180218
  9. LANSOPRAZOLE [Suspect]
     Active Substance: LANSOPRAZOLE
     Dosage: 5 MILLIGRAM, QD
     Dates: start: 20220207, end: 20220207
  10. LANSOPRAZOLE [Suspect]
     Active Substance: LANSOPRAZOLE
     Dosage: 10 MILLIGRAM, QD
     Dates: start: 20180207, end: 20180218
  11. LANSOPRAZOLE [Suspect]
     Active Substance: LANSOPRAZOLE
     Dosage: 5 MILLIGRAM, QD
     Dates: start: 20220207, end: 20220218
  12. CANDESARTAN CILEXETIL [Suspect]
     Active Substance: CANDESARTAN CILEXETIL
     Indication: Cerebrovascular accident prophylaxis
     Dosage: 2 MILLIGRAM, QD ((MORNING)OFF LABEL DOSING FREQUENCY)
  13. CANDESARTAN CILEXETIL [Suspect]
     Active Substance: CANDESARTAN CILEXETIL
  14. CANDESARTAN CILEXETIL [Suspect]
     Active Substance: CANDESARTAN CILEXETIL
  15. CANDESARTAN CILEXETIL [Suspect]
     Active Substance: CANDESARTAN CILEXETIL
     Dosage: 2 MILLIGRAM, QD (MORNING)
  16. CANDESARTAN CILEXETIL [Suspect]
     Active Substance: CANDESARTAN CILEXETIL
     Dosage: 2 MILLIGRAM, QD (MORNING)
  17. CANDESARTAN CILEXETIL [Suspect]
     Active Substance: CANDESARTAN CILEXETIL
     Dosage: 2 MILLIGRAM, QD (MORNING)
  18. CANDESARTAN CILEXETIL [Suspect]
     Active Substance: CANDESARTAN CILEXETIL
     Dosage: 2 MILLIGRAM, QD (MORNING)
  19. CANDESARTAN CILEXETIL [Suspect]
     Active Substance: CANDESARTAN CILEXETIL
     Dosage: 2 MILLIGRAM, QD (MORNING)
  20. CANDESARTAN CILEXETIL [Suspect]
     Active Substance: CANDESARTAN CILEXETIL
     Dosage: 2 MILLIGRAM, QD
  21. CANDESARTAN CILEXETIL [Suspect]
     Active Substance: CANDESARTAN CILEXETIL
     Dosage: 2 MILLIGRAM, QD (OFF LABEL USE)
  22. CANDESARTAN CILEXETIL [Suspect]
     Active Substance: CANDESARTAN CILEXETIL
     Dosage: 2 MILLIGRAM, QD (OFF LABEL USE)
  23. CANDESARTAN CILEXETIL [Suspect]
     Active Substance: CANDESARTAN CILEXETIL
     Dosage: 10 MILLIGRAM, QD
  24. CANDESARTAN CILEXETIL [Suspect]
     Active Substance: CANDESARTAN CILEXETIL
     Dosage: 1 DOSAGE FORM, QD
  25. CETIRIZINE [Suspect]
     Active Substance: CETIRIZINE HYDROCHLORIDE
     Indication: Product used for unknown indication
     Dosage: 10 MILLIGRAM, QD (MORNING)
  26. CETIRIZINE [Suspect]
     Active Substance: CETIRIZINE HYDROCHLORIDE
     Dosage: 10 MILLIGRAM, QD (MORNING)
  27. CETIRIZINE [Suspect]
     Active Substance: CETIRIZINE HYDROCHLORIDE
     Dosage: 10 MILLIGRAM, QD (MORNING)
  28. CETIRIZINE [Suspect]
     Active Substance: CETIRIZINE HYDROCHLORIDE
     Dosage: 10 MILLIGRAM, QD (MORNING)
  29. CETIRIZINE [Suspect]
     Active Substance: CETIRIZINE HYDROCHLORIDE
     Dosage: 10 MILLIGRAM, QD (MORNING)
  30. CETIRIZINE [Suspect]
     Active Substance: CETIRIZINE HYDROCHLORIDE
     Dosage: 10 MILLIGRAM, QD (MORNING)
  31. CETIRIZINE [Suspect]
     Active Substance: CETIRIZINE HYDROCHLORIDE
     Dosage: 10 MILLIGRAM, QD (MORNING)
  32. CETIRIZINE [Suspect]
     Active Substance: CETIRIZINE HYDROCHLORIDE
     Dosage: 10 MILLIGRAM, QD (MORNING)
  33. CETIRIZINE [Suspect]
     Active Substance: CETIRIZINE HYDROCHLORIDE
     Dosage: 10 MILLIGRAM, QD (MORNING)
  34. CETIRIZINE [Suspect]
     Active Substance: CETIRIZINE HYDROCHLORIDE
     Dosage: 1 DOSAGE FORM, QD
  35. CETIRIZINE [Suspect]
     Active Substance: CETIRIZINE HYDROCHLORIDE
     Dosage: 6.25 MILLIGRAM, QD
  36. SIMVASTATIN [Suspect]
     Active Substance: SIMVASTATIN
     Indication: Product used for unknown indication
     Dosage: 40 MILLIGRAM, QD (40MG, OD, NIGHT)
  37. SIMVASTATIN [Suspect]
     Active Substance: SIMVASTATIN
     Dosage: 40 MILLIGRAM, QD
  38. SIMVASTATIN [Suspect]
     Active Substance: SIMVASTATIN
     Dosage: 40 MILLIGRAM, QD
  39. SIMVASTATIN [Suspect]
     Active Substance: SIMVASTATIN
     Dosage: 40 MILLIGRAM, QD
  40. SIMVASTATIN [Suspect]
     Active Substance: SIMVASTATIN
     Dosage: 40 MILLIGRAM, HS (AT NIGHT)
  41. SIMVASTATIN [Suspect]
     Active Substance: SIMVASTATIN
     Dosage: 40 MILLIGRAM, QD
  42. SIMVASTATIN [Suspect]
     Active Substance: SIMVASTATIN
     Dosage: 40 MILLIGRAM, QD
  43. SIMVASTATIN [Suspect]
     Active Substance: SIMVASTATIN
     Dosage: 40 MILLIGRAM, QD
  44. SIMVASTATIN [Suspect]
     Active Substance: SIMVASTATIN
     Dosage: 40 MILLIGRAM, QD
  45. SIMVASTATIN [Suspect]
     Active Substance: SIMVASTATIN
  46. SIMVASTATIN [Suspect]
     Active Substance: SIMVASTATIN
  47. SIMVASTATIN [Suspect]
     Active Substance: SIMVASTATIN
     Dosage: 40 MILLIGRAM, QD
  48. SIMVASTATIN [Suspect]
     Active Substance: SIMVASTATIN
     Dosage: 40 MILLIGRAM, QD
  49. SIMVASTATIN [Suspect]
     Active Substance: SIMVASTATIN
     Dosage: 40 MILLIGRAM, QD
  50. SIMVASTATIN [Suspect]
     Active Substance: SIMVASTATIN
  51. SIMVASTATIN [Suspect]
     Active Substance: SIMVASTATIN
     Dosage: 40 MILLIGRAM, QD
  52. SIMVASTATIN [Suspect]
     Active Substance: SIMVASTATIN
     Dosage: 40 MILLIGRAM, QD
  53. SIMVASTATIN [Suspect]
     Active Substance: SIMVASTATIN
     Dosage: 40 MILLIGRAM, QD
  54. SIMVASTATIN [Suspect]
     Active Substance: SIMVASTATIN
     Dosage: 40 MILLIGRAM, QD
  55. SIMVASTATIN [Suspect]
     Active Substance: SIMVASTATIN
     Dosage: 40 MILLIGRAM, QD
  56. SIMVASTATIN [Suspect]
     Active Substance: SIMVASTATIN
     Dosage: 40 MILLIGRAM, QD
  57. SIMVASTATIN [Suspect]
     Active Substance: SIMVASTATIN
     Dosage: 40 MILLIGRAM, QD
  58. SIMVASTATIN [Suspect]
     Active Substance: SIMVASTATIN
     Dosage: 40 MILLIGRAM, QD
  59. BISOPROLOL [Suspect]
     Active Substance: BISOPROLOL
     Indication: Cerebrovascular accident prophylaxis
     Dosage: 10 MILLIGRAM, QD ((1 DAY)OFF LABEL USE)
  60. BISOPROLOL [Suspect]
     Active Substance: BISOPROLOL
     Dosage: 5 MILLIGRAM, QD
     Dates: start: 20240807, end: 20240807
  61. BISOPROLOL [Suspect]
     Active Substance: BISOPROLOL
     Dosage: 5 MILLIGRAM, QD
  62. BISOPROLOL [Suspect]
     Active Substance: BISOPROLOL
     Dosage: 10 MILLIGRAM, QD
     Dates: start: 20240807, end: 20240807
  63. ISOSORBIDE [Suspect]
     Active Substance: ISOSORBIDE
     Indication: Product used for unknown indication
     Dosage: 50 MILLIGRAM, QD (MORNING)
  64. ISOSORBIDE [Suspect]
     Active Substance: ISOSORBIDE
     Dosage: 50 MILLIGRAM, QD (MORNING)
  65. ISOSORBIDE [Suspect]
     Active Substance: ISOSORBIDE
  66. ISOSORBIDE [Suspect]
     Active Substance: ISOSORBIDE
     Dosage: 50 MILLIGRAM, QD (MORNING)
  67. ISOSORBIDE [Suspect]
     Active Substance: ISOSORBIDE
     Dosage: 50 MILLIGRAM, QD (MORNING)
  68. ISOSORBIDE [Suspect]
     Active Substance: ISOSORBIDE
     Dosage: 50 MILLIGRAM, QD (MORNING)
  69. ISOSORBIDE [Suspect]
     Active Substance: ISOSORBIDE
     Dosage: 50 MILLIGRAM, QD (MORNING)
  70. ISOSORBIDE [Suspect]
     Active Substance: ISOSORBIDE
     Dosage: 50 MILLIGRAM, QD (MORNING)
  71. ISOSORBIDE [Suspect]
     Active Substance: ISOSORBIDE
     Dosage: 50 MILLIGRAM, QD (MORNING)
  72. ISOSORBIDE [Suspect]
     Active Substance: ISOSORBIDE
  73. ISOSORBIDE [Suspect]
     Active Substance: ISOSORBIDE
     Dosage: 50 MILLIGRAM, QD (MORNING)
  74. DIGOXIN [Suspect]
     Active Substance: DIGOXIN
     Indication: Cerebrovascular accident prophylaxis
     Dosage: 62.5 MICROGRAM (MORNING)
  75. DIGOXIN [Suspect]
     Active Substance: DIGOXIN
  76. DIGOXIN [Suspect]
     Active Substance: DIGOXIN
     Dosage: 62.5 GRAM (MORNING)
  77. DIGOXIN [Suspect]
     Active Substance: DIGOXIN
     Dosage: 62.5 MICROGRAM AM (MORNING)
  78. DIGOXIN [Suspect]
     Active Substance: DIGOXIN
     Dosage: 62.5 MICROGRAM, QD
  79. DIGOXIN [Suspect]
     Active Substance: DIGOXIN
     Dosage: 62.5 MICROGRAM, QD
  80. DIGOXIN [Suspect]
     Active Substance: DIGOXIN
     Dosage: 62.5 MICROGRAM, QD
  81. DIGOXIN [Suspect]
     Active Substance: DIGOXIN
     Dosage: 62.5 MICROGRAM, QD
  82. DIGOXIN [Suspect]
     Active Substance: DIGOXIN
     Dosage: 62.5 MICROGRAM, QD
  83. DIGOXIN [Suspect]
     Active Substance: DIGOXIN
     Dosage: 62.5 MICROGRAM, QD
  84. DIGOXIN [Suspect]
     Active Substance: DIGOXIN
     Dosage: 1 MICROGRAM, QD
  85. DIGOXIN [Suspect]
     Active Substance: DIGOXIN
     Dosage: 4 MICROGRAM, QD
  86. DIGOXIN [Suspect]
     Active Substance: DIGOXIN
     Dosage: 50 MICROGRAM, QD
  87. DIGOXIN [Suspect]
     Active Substance: DIGOXIN
     Dosage: 63 DOSAGE FORM, QD
  88. DIGOXIN [Suspect]
     Active Substance: DIGOXIN
  89. LEVOTHYROXINE SODIUM [Suspect]
     Active Substance: LEVOTHYROXINE SODIUM
     Indication: Product used for unknown indication
     Dosage: 125 MICROGRAM, QD (MORNING)
  90. LEVOTHYROXINE SODIUM [Suspect]
     Active Substance: LEVOTHYROXINE SODIUM
     Dosage: 50 MICROGRAM, QD (MORNING)
  91. LEVOTHYROXINE SODIUM [Suspect]
     Active Substance: LEVOTHYROXINE SODIUM
     Dosage: 1 DOSAGE FORM, QD (MORNING)
  92. LEVOTHYROXINE SODIUM [Suspect]
     Active Substance: LEVOTHYROXINE SODIUM
     Dosage: 50 GRAM, AM (MORNING)
  93. LEVOTHYROXINE SODIUM [Suspect]
     Active Substance: LEVOTHYROXINE SODIUM
     Dosage: 1 DOSAGE FORM, QD (MORNING)
  94. LEVOTHYROXINE SODIUM [Suspect]
     Active Substance: LEVOTHYROXINE SODIUM
     Dosage: 1 DOSAGE FORM, QD (MORNING)
  95. LEVOTHYROXINE SODIUM [Suspect]
     Active Substance: LEVOTHYROXINE SODIUM
     Dosage: 125 MICROGRAM, QD (MORNING)
  96. LEVOTHYROXINE SODIUM [Suspect]
     Active Substance: LEVOTHYROXINE SODIUM
     Dosage: 3 MILLIGRAM, QD
  97. LEVOTHYROXINE SODIUM [Suspect]
     Active Substance: LEVOTHYROXINE SODIUM
     Dosage: 5 MILLIGRAM, QD
  98. LEVOTHYROXINE SODIUM [Suspect]
     Active Substance: LEVOTHYROXINE SODIUM
     Dosage: 12 MICROGRAM, QD
  99. LEVOTHYROXINE SODIUM [Suspect]
     Active Substance: LEVOTHYROXINE SODIUM
     Dosage: 50 MILLIGRAM, QD
  100. LEVOTHYROXINE SODIUM [Suspect]
     Active Substance: LEVOTHYROXINE SODIUM
     Dosage: 10 MILLIGRAM, QD
  101. LEVOTHYROXINE SODIUM [Suspect]
     Active Substance: LEVOTHYROXINE SODIUM
     Dosage: 30 MILLIGRAM, QD (ONCE DAILY MORNING)
  102. LEVOTHYROXINE SODIUM [Suspect]
     Active Substance: LEVOTHYROXINE SODIUM
     Dosage: 2 MILLIGRAM, QD
  103. ELIQUIS [Suspect]
     Active Substance: APIXABAN
     Indication: Atrial fibrillation
     Dosage: 10 MILLIGRAM, QD
  104. ELIQUIS [Suspect]
     Active Substance: APIXABAN
     Indication: Cerebrovascular accident prophylaxis
     Dosage: 10 MILLIGRAM, QD
  105. ELIQUIS [Suspect]
     Active Substance: APIXABAN
  106. ELIQUIS [Suspect]
     Active Substance: APIXABAN
     Dosage: 10 MILLIGRAM, QD
  107. ELIQUIS [Suspect]
     Active Substance: APIXABAN
     Dosage: 5 MILLIGRAM, QD
  108. ELIQUIS [Suspect]
     Active Substance: APIXABAN
     Dosage: 10 MILLIGRAM, QD
  109. ELIQUIS [Suspect]
     Active Substance: APIXABAN
     Dosage: 10 MILLIGRAM, QD
  110. ELIQUIS [Suspect]
     Active Substance: APIXABAN
     Dosage: 10 MILLIGRAM, QD
  111. ELIQUIS [Suspect]
     Active Substance: APIXABAN
     Dosage: 5 MILLIGRAM, QD (5MG DAILY)
  112. LINAGLIPTIN [Suspect]
     Active Substance: LINAGLIPTIN
     Indication: Product used for unknown indication
     Dosage: 5 MILLIGRAM, QD
  113. LINAGLIPTIN [Suspect]
     Active Substance: LINAGLIPTIN
     Dosage: 5 MILLIGRAM, QD
  114. LINAGLIPTIN [Suspect]
     Active Substance: LINAGLIPTIN
     Dosage: 5 MILLIGRAM, QD
  115. LINAGLIPTIN [Suspect]
     Active Substance: LINAGLIPTIN
     Dosage: 5 MILLIGRAM, QD
  116. LINAGLIPTIN [Suspect]
     Active Substance: LINAGLIPTIN
     Dosage: 5 MILLIGRAM, QD
  117. LINAGLIPTIN [Suspect]
     Active Substance: LINAGLIPTIN
     Dosage: 5 MILLIGRAM, QD
  118. LINAGLIPTIN [Suspect]
     Active Substance: LINAGLIPTIN
     Dosage: 5 MILLIGRAM, QD
  119. LINAGLIPTIN [Suspect]
     Active Substance: LINAGLIPTIN
     Dosage: 5 MILLIGRAM, QD
  120. LINAGLIPTIN [Suspect]
     Active Substance: LINAGLIPTIN
     Dosage: 5 MILLIGRAM, QD
  121. LINAGLIPTIN [Suspect]
     Active Substance: LINAGLIPTIN
     Dosage: 5 MILLIGRAM, QD
  122. HYDROCHLOROTHIAZIDE [Suspect]
     Active Substance: HYDROCHLOROTHIAZIDE
     Indication: Cerebrovascular accident prophylaxis
     Dosage: 2 MILLIGRAM, QD (MORNING)
  123. HYDROCHLOROTHIAZIDE [Suspect]
     Active Substance: HYDROCHLOROTHIAZIDE
     Dosage: 2 MILLIGRAM, QD (MORNING)
  124. HYDROCHLOROTHIAZIDE [Suspect]
     Active Substance: HYDROCHLOROTHIAZIDE
     Dosage: 2 MILLIGRAM, QD (MORNING)
  125. HYDROCHLOROTHIAZIDE [Suspect]
     Active Substance: HYDROCHLOROTHIAZIDE
     Dosage: 2 MILLIGRAM, AM (MORNING)
  126. HYDROCHLOROTHIAZIDE [Suspect]
     Active Substance: HYDROCHLOROTHIAZIDE
     Dosage: 1 DOSAGE FORM, QD (MORNING)
  127. HYDROCHLOROTHIAZIDE [Suspect]
     Active Substance: HYDROCHLOROTHIAZIDE
     Dosage: 2 MILLIGRAM, QD (MORNING)
  128. HYDROCHLOROTHIAZIDE [Suspect]
     Active Substance: HYDROCHLOROTHIAZIDE
     Dosage: 2 MILLIGRAM, QD (MORNING)
  129. HYDROCHLOROTHIAZIDE [Suspect]
     Active Substance: HYDROCHLOROTHIAZIDE
     Dosage: 2 MILLIGRAM, QD (MORNING)
  130. LEVOTHYROXINE SODIUM [Suspect]
     Active Substance: LEVOTHYROXINE SODIUM
     Indication: Product used for unknown indication
     Dosage: 1 DOSAGE FORM, QD
  131. LEVOTHYROXINE SODIUM [Suspect]
     Active Substance: LEVOTHYROXINE SODIUM
     Dosage: 50 MILLIGRAM, QD
  132. IMDUR [Suspect]
     Active Substance: ISOSORBIDE MONONITRATE
     Indication: Product used for unknown indication
     Dosage: 50 MILLIGRAM, QD
  133. IMDUR [Suspect]
     Active Substance: ISOSORBIDE MONONITRATE
     Dosage: 50 MILLIGRAM, QD
  134. IMDUR [Suspect]
     Active Substance: ISOSORBIDE MONONITRATE
  135. IMDUR [Suspect]
     Active Substance: ISOSORBIDE MONONITRATE
     Dosage: 50 MILLIGRAM, QD
  136. IMDUR [Suspect]
     Active Substance: ISOSORBIDE MONONITRATE
     Dosage: 50 MILLIGRAM, QD
  137. IMDUR [Suspect]
     Active Substance: ISOSORBIDE MONONITRATE
     Dosage: 50 MILLIGRAM, QD
  138. IMDUR [Suspect]
     Active Substance: ISOSORBIDE MONONITRATE
     Dosage: 50 MILLIGRAM, QD
  139. IMDUR [Suspect]
     Active Substance: ISOSORBIDE MONONITRATE
     Dosage: 50 MILLIGRAM, QD
  140. ISOSORBIDE DINITRATE [Suspect]
     Active Substance: ISOSORBIDE DINITRATE
     Indication: Product used for unknown indication
     Dosage: 50 MILLIGRAM, QD (ONCE A DAY, MORNING))
  141. ISOSORBIDE DINITRATE [Suspect]
     Active Substance: ISOSORBIDE DINITRATE
     Dosage: UNK, QD
  142. ISOSORBIDE DINITRATE [Suspect]
     Active Substance: ISOSORBIDE DINITRATE
     Dosage: 50 MILLIGRAM, QD (ONCE A DAY, MORNING))
  143. ISOSORBIDE DINITRATE [Suspect]
     Active Substance: ISOSORBIDE DINITRATE
     Dosage: 50 MILLIGRAM, QD (ONCE A DAY, MORNING))
  144. ISOSORBIDE DINITRATE [Suspect]
     Active Substance: ISOSORBIDE DINITRATE
     Dosage: 50 MILLIGRAM, QD (ONCE A DAY, MORNING))
  145. ISOSORBIDE DINITRATE [Suspect]
     Active Substance: ISOSORBIDE DINITRATE
     Dosage: 50 MILLIGRAM, QD (ONCE A DAY, MORNING))
  146. ISOSORBIDE DINITRATE [Suspect]
     Active Substance: ISOSORBIDE DINITRATE
     Dosage: 50 MILLIGRAM, QD (ONCE A DAY, MORNING))
  147. ISOSORBIDE DINITRATE [Suspect]
     Active Substance: ISOSORBIDE DINITRATE
     Dosage: 50 MILLIGRAM, QD (EVERY MORNING))
  148. LINAGLIPTIN [Suspect]
     Active Substance: LINAGLIPTIN
     Indication: Product used for unknown indication
     Dosage: 5 MILLIGRAM, QD
  149. LINAGLIPTIN [Suspect]
     Active Substance: LINAGLIPTIN
     Dosage: 5 MILLIGRAM, QD
  150. LINAGLIPTIN [Suspect]
     Active Substance: LINAGLIPTIN
     Dosage: 5 MILLIGRAM, QD
  151. ISOSORBIDE MONONITRATE [Interacting]
     Active Substance: ISOSORBIDE MONONITRATE
     Indication: Product used for unknown indication
     Dosage: 50 MILLIGRAM, QD
  152. ISOSORBIDE MONONITRATE [Interacting]
     Active Substance: ISOSORBIDE MONONITRATE
  153. ISOSORBIDE MONONITRATE [Interacting]
     Active Substance: ISOSORBIDE MONONITRATE
  154. ISOSORBIDE MONONITRATE [Interacting]
     Active Substance: ISOSORBIDE MONONITRATE
  155. ISOSORBIDE MONONITRATE [Interacting]
     Active Substance: ISOSORBIDE MONONITRATE
     Dosage: 50 MILLIGRAM, QD
  156. CETIRIZINE HYDROCHLORIDE [Suspect]
     Active Substance: CETIRIZINE HYDROCHLORIDE
     Indication: Product used for unknown indication
     Dosage: 10 MILLIGRAM, QD
  157. CETIRIZINE HYDROCHLORIDE [Suspect]
     Active Substance: CETIRIZINE HYDROCHLORIDE
     Dosage: 10 MILLIGRAM, QD
  158. BISOPROLOL FUMARATE [Suspect]
     Active Substance: BISOPROLOL FUMARATE
     Indication: Cerebrovascular accident prophylaxis
     Dosage: 5 MILLIGRAM, QD (OFF LABEL USE)
  159. BISOPROLOL FUMARATE [Suspect]
     Active Substance: BISOPROLOL FUMARATE
     Dosage: 10 MILLIGRAM, QD
  160. BISOPROLOL FUMARATE [Suspect]
     Active Substance: BISOPROLOL FUMARATE
     Dosage: 5 MILLIGRAM, QD
  161. CANDESARTAN [Suspect]
     Active Substance: CANDESARTAN
     Indication: Cerebrovascular accident prophylaxis
     Dosage: 2 MILLIGRAM, QD
  162. CANDESARTAN [Suspect]
     Active Substance: CANDESARTAN
     Dosage: 10 MILLIGRAM, QD
  163. CANDESARTAN [Suspect]
     Active Substance: CANDESARTAN
     Dosage: 2 MILLIGRAM, QD
  164. CANDESARTAN [Suspect]
     Active Substance: CANDESARTAN
     Dosage: 10 MILLIGRAM, QD
  165. CANDESARTAN [Suspect]
     Active Substance: CANDESARTAN
     Dosage: 2 MILLIGRAM, QD
  166. CANDESARTAN [Suspect]
     Active Substance: CANDESARTAN
     Dosage: 2 MILLIGRAM, QD
  167. CANDESARTAN [Suspect]
     Active Substance: CANDESARTAN
     Dosage: 10 MILLIGRAM, QD
  168. CANDESARTAN [Suspect]
     Active Substance: CANDESARTAN
     Dosage: 2 MILLIGRAM, QD
  169. CANDESARTAN [Suspect]
     Active Substance: CANDESARTAN
     Dosage: 2 MILLIGRAM, QD
  170. CETIRIZINE HYDROCHLORIDE [Suspect]
     Active Substance: CETIRIZINE HYDROCHLORIDE
     Indication: Product used for unknown indication
     Dosage: 10 MILLIGRAM, QD
  171. CETIRIZINE HYDROCHLORIDE [Suspect]
     Active Substance: CETIRIZINE HYDROCHLORIDE
     Dosage: 10 MILLIGRAM, QD
  172. CETIRIZINE HYDROCHLORIDE [Suspect]
     Active Substance: CETIRIZINE HYDROCHLORIDE
     Dosage: 10 MILLIGRAM, QD
  173. CETIRIZINE HYDROCHLORIDE [Suspect]
     Active Substance: CETIRIZINE HYDROCHLORIDE
     Dosage: 10 MILLIGRAM, QD
  174. CETIRIZINE HYDROCHLORIDE [Suspect]
     Active Substance: CETIRIZINE HYDROCHLORIDE
     Dosage: 10 MILLIGRAM, QD
  175. CETIRIZINE HYDROCHLORIDE [Suspect]
     Active Substance: CETIRIZINE HYDROCHLORIDE
     Dosage: 10 MILLIGRAM, QD
  176. CETIRIZINE HYDROCHLORIDE [Suspect]
     Active Substance: CETIRIZINE HYDROCHLORIDE
     Dosage: 10 MILLIGRAM, QD
  177. ELIQUIS [Suspect]
     Active Substance: APIXABAN
     Indication: Atrial fibrillation
     Dosage: 5 MILLIGRAM, QD
     Dates: start: 20180207
  178. ELIQUIS [Suspect]
     Active Substance: APIXABAN
     Indication: Cerebrovascular accident prophylaxis
  179. APIXABAN [Suspect]
     Active Substance: APIXABAN
     Indication: Cerebrovascular accident prophylaxis
     Dosage: 10 MILLIGRAM, QD
     Dates: start: 20180207, end: 20180207
  180. APIXABAN [Suspect]
     Active Substance: APIXABAN
     Dosage: 5 MILLIGRAM, QD
     Dates: start: 20180207, end: 20180207
  181. APIXABAN [Suspect]
     Active Substance: APIXABAN
     Dosage: 10 MILLIGRAM, QD
     Dates: start: 20180207, end: 20180207
  182. OMEPRAZOLE [Interacting]
     Active Substance: OMEPRAZOLE
     Indication: Product used for unknown indication
     Dosage: 20 MILLIGRAM, BID
  183. QUETIAPINE [Interacting]
     Active Substance: QUETIAPINE
     Indication: Product used for unknown indication
     Dosage: 25 MILLIGRAM, QD
  184. METOPROLOL [Concomitant]
     Active Substance: METOPROLOL
  185. RAMIPRIL [Concomitant]
     Active Substance: RAMIPRIL
     Dosage: 5 MILLIGRAM, QD (1-0-0)
  186. TRAMADOL [Concomitant]
     Active Substance: TRAMADOL
  187. LEVOTHYROXINE SODIUM [Concomitant]
     Active Substance: LEVOTHYROXINE SODIUM
  188. SPIRONOLACTONE [Concomitant]
     Active Substance: SPIRONOLACTONE
  189. DABIGATRAN [Concomitant]
     Active Substance: DABIGATRAN
     Dosage: 220 MILLIGRAM, QD (1-0-1)
  190. FUROSEMIDE [Concomitant]
     Active Substance: FUROSEMIDE
  191. CITALOPRAM [Concomitant]
     Active Substance: CITALOPRAM
  192. HYDROXYZINE [Concomitant]
     Active Substance: HYDROXYZINE HYDROCHLORIDE
  193. ZOLPIDEM [Concomitant]
     Active Substance: ZOLPIDEM TARTRATE
  194. ALPRAZOLAM [Concomitant]
     Active Substance: ALPRAZOLAM
  195. ALLOPURINOL [Concomitant]
     Active Substance: ALLOPURINOL
     Dosage: 100 MILLIGRAM, QD
  196. ATORVASTATIN [Concomitant]
     Active Substance: ATORVASTATIN
     Dosage: 20 MILLIGRAM, QD (0-0-1)
  197. HYDROCHLOROTHIAZIDE [Concomitant]
     Active Substance: HYDROCHLOROTHIAZIDE
     Dosage: 25 MILLIGRAM, QD
  198. GLICLAZIDE [Concomitant]
     Active Substance: GLICLAZIDE
     Dosage: 180 MILLIGRAM, QD
  199. DEXTROSE [Concomitant]
     Active Substance: DEXTROSE MONOHYDRATE
  200. BETAHISTINE [Concomitant]
     Active Substance: BETAHISTINE
     Dosage: 24 MILLIGRAM, QD
  201. POTASSIUM CHLORIDE [Concomitant]
     Active Substance: POTASSIUM CHLORIDE
     Dosage: 391 MILLIGRAM, QOD (1 TABLET EVERY OTHER DAY)
  202. ACETAMINOPHEN [Concomitant]
     Active Substance: ACETAMINOPHEN
     Dosage: 500 MILLIGRAM, QD
  203. OMEPRAZOLE [Concomitant]
     Active Substance: OMEPRAZOLE
     Dosage: 40 MILLIGRAM, QD
  204. ALBUTEROL [Concomitant]
     Active Substance: ALBUTEROL
  205. METOCLOPRAMIDE [Concomitant]
     Active Substance: METOCLOPRAMIDE
  206. LEVOTHYROXINE [Concomitant]
     Active Substance: LEVOTHYROXINE
  207. CANDESARTAN [Concomitant]
     Active Substance: CANDESARTAN

REACTIONS (90)
  - Subarachnoid haemorrhage [Recovered/Resolved with Sequelae]
  - Malaise [Unknown]
  - Hypotension [Unknown]
  - Back pain [Unknown]
  - Abdominal pain upper [Not Recovered/Not Resolved]
  - Nausea [Recovered/Resolved]
  - Cognitive disorder [Recovered/Resolved]
  - Mobility decreased [Unknown]
  - Diabetes mellitus inadequate control [Unknown]
  - Osteoporosis [Unknown]
  - Hyponatraemia [Unknown]
  - Depression [Unknown]
  - Dementia [Unknown]
  - Syncope [Unknown]
  - Urinary retention [Unknown]
  - Amnesia [Not Recovered/Not Resolved]
  - Abdominal discomfort [Recovered/Resolved]
  - Blindness [Recovered/Resolved]
  - Tinnitus [Not Recovered/Not Resolved]
  - Palmoplantar keratoderma [Not Recovered/Not Resolved]
  - Atrial tachycardia [Not Recovered/Not Resolved]
  - Dry skin [Not Recovered/Not Resolved]
  - Immunisation [Recovered/Resolved]
  - Alopecia [Recovered/Resolved with Sequelae]
  - Tension headache [Not Recovered/Not Resolved]
  - Diarrhoea [Recovered/Resolved]
  - Headache [Not Recovered/Not Resolved]
  - Hallucination [Recovered/Resolved]
  - Angioedema [Recovered/Resolved]
  - COVID-19 [Recovered/Resolved with Sequelae]
  - Dizziness [Recovered/Resolved]
  - Arthralgia [Recovered/Resolved]
  - Pain of skin [Recovered/Resolved]
  - Peripheral swelling [Recovered/Resolved]
  - Disturbance in attention [Recovered/Resolved]
  - Cognitive disorder [Recovered/Resolved]
  - Memory impairment [Recovered/Resolved]
  - Visual impairment [Not Recovered/Not Resolved]
  - Diplopia [Not Recovered/Not Resolved]
  - Vasculitis [Not Recovered/Not Resolved]
  - Carotid artery occlusion [Recovered/Resolved]
  - Transient ischaemic attack [Recovered/Resolved]
  - Pruritus genital [Recovered/Resolved]
  - Subarachnoid haemorrhage [Recovered/Resolved with Sequelae]
  - Sleep terror [Recovered/Resolved]
  - Vomiting [Recovered/Resolved]
  - Ventricular tachycardia [Not Recovered/Not Resolved]
  - Pericarditis [Not Recovered/Not Resolved]
  - Cardiospasm [Not Recovered/Not Resolved]
  - Dyspnoea [Unknown]
  - Fatigue [Recovered/Resolved]
  - Anxiety [Not Recovered/Not Resolved]
  - Muscular weakness [Unknown]
  - Feeling abnormal [Unknown]
  - Insomnia [Unknown]
  - Heart rate increased [Unknown]
  - Blood glucose increased [Unknown]
  - Muscle twitching [Unknown]
  - Dehydration [Unknown]
  - Pyrexia [Unknown]
  - Drug dependence [Unknown]
  - Hyperhidrosis [Unknown]
  - Chest pain [Unknown]
  - Back pain [Unknown]
  - Rash [Recovering/Resolving]
  - Lip swelling [Recovering/Resolving]
  - Pruritus [Recovering/Resolving]
  - Myocardial infarction [Recovered/Resolved with Sequelae]
  - Tachycardia [Unknown]
  - Pain [Recovered/Resolved]
  - Eye pruritus [Recovered/Resolved]
  - Anosmia [Recovered/Resolved]
  - Facial pain [Recovered/Resolved]
  - Palpitations [Unknown]
  - Migraine [Not Recovered/Not Resolved]
  - Malaise [Unknown]
  - Medication error [Unknown]
  - Drug interaction [Unknown]
  - Incorrect product administration duration [Unknown]
  - Intentional product misuse [Unknown]
  - Intentional product use issue [Unknown]
  - Off label use [Unknown]
  - Sedation complication [Unknown]
  - Hypotonia [Unknown]
  - Parkinsonism [Unknown]
  - Ataxia [Unknown]
  - Hypoglycaemia [Unknown]
  - Stupor [Unknown]
  - Dizziness [Unknown]
  - Fall [Unknown]

NARRATIVE: CASE EVENT DATE: 20180207
